FAERS Safety Report 8450367-2 (Version None)
Quarter: 2012Q2

REPORT INFORMATION
  Report Type: 
  Country: None (occurrence: None)
  Receive Date: 20120620
  Receipt Date: 20120607
  Transmission Date: 20120825
  Serious: Yes (Other)
  Sender: FDA-Public Use
  Company Number: CN-PFIZER INC-2012145109

PATIENT
  Age: 83 Year
  Sex: Male

DRUGS (5)
  1. FLUNARIZINE [Concomitant]
     Dosage: UNK
  2. VINPOCETINE [Concomitant]
     Dosage: UNK
  3. DONEPEZIL [Concomitant]
     Dosage: UNK
  4. ATORVASTATIN CALCIUM [Suspect]
     Dosage: 20 MG, 1X/DAY
     Route: 048
     Dates: start: 20091210, end: 20100105
  5. PROBUCOL [Concomitant]
     Dosage: UNK

REACTIONS (1)
  - PLATELET COUNT DECREASED [None]
